FAERS Safety Report 4456862-5 (Version None)
Quarter: 2004Q3

REPORT INFORMATION
  Report Type: 
  Country: None (occurrence: None)
  Receive Date: 20040923
  Receipt Date: 20040910
  Transmission Date: 20050211
  Serious: Yes (Hospitalization)
  Sender: FDA-Public Use
  Company Number: PHHO2004US12798

PATIENT
  Age: 57 Year
  Sex: Male
  Weight: 84 kg

DRUGS (2)
  1. CYCLOSPORINE [Suspect]
     Indication: RENAL TRANSPLANT
     Dosage: 550 MG, BID
     Route: 048
  2. CYCLOSPORINE [Suspect]
     Dosage: 500 MG, BID
     Route: 048
     Dates: end: 20040902

REACTIONS (14)
  - BLADDER CATHETERISATION [None]
  - BLOOD CREATININE INCREASED [None]
  - CARDIAC FAILURE CONGESTIVE [None]
  - COMPLICATIONS OF TRANSPLANTED KIDNEY [None]
  - DISEASE PROGRESSION [None]
  - ESCHERICHIA URINARY TRACT INFECTION [None]
  - FLUID OVERLOAD [None]
  - GLOMERULONEPHRITIS PROLIFERATIVE [None]
  - HAEMATURIA [None]
  - HYDRONEPHROSIS [None]
  - HYPERKALAEMIA [None]
  - KIDNEY TRANSPLANT REJECTION [None]
  - RENAL FAILURE [None]
  - URINE OUTPUT DECREASED [None]
